FAERS Safety Report 18506249 (Version 5)
Quarter: 2021Q1

REPORT INFORMATION
  Report Type: Spontaneous
  Country: RU (occurrence: RU)
  Receive Date: 20201116
  Receipt Date: 20210131
  Transmission Date: 20210419
  Serious: Yes (Death, Other)
  Sender: FDA-Public Use
  Company Number: RU-AMGEN-RUSSP2020182156

PATIENT

DRUGS (1)
  1. ROMIPLOSTIM [Suspect]
     Active Substance: ROMIPLOSTIM
     Indication: THROMBOCYTOPENIA
     Dosage: 9 MICROGRAM/KILOGRAM, QWK
     Route: 058

REACTIONS (9)
  - Loss of therapeutic response [Unknown]
  - Therapy partial responder [Unknown]
  - Drug ineffective for unapproved indication [Unknown]
  - Thrombocytosis [Recovered/Resolved]
  - Platelet count decreased [Unknown]
  - Procedural complication [Fatal]
  - Off label use [Unknown]
  - Death [Fatal]
  - Carotid artery thrombosis [Unknown]
